FAERS Safety Report 18353111 (Version 1)
Quarter: 2020Q4

REPORT INFORMATION
  Report Type: Spontaneous
  Country: CN (occurrence: CN)
  Receive Date: 20201007
  Receipt Date: 20201007
  Transmission Date: 20210114
  Serious: Yes (Hospitalization, Other)
  Sender: FDA-Public Use
  Company Number: ALC2020CN007875

PATIENT
  Age: 78 Year
  Sex: Male

DRUGS (3)
  1. DICLOFENAC SODIUM. [Suspect]
     Active Substance: DICLOFENAC SODIUM
     Indication: UVEITIS
     Dosage: UNK
     Route: 065
  2. CICLOSPORIN [Suspect]
     Active Substance: CYCLOSPORINE
     Indication: UVEITIS
     Dosage: UNK
     Route: 065
  3. TOBRADEX [Suspect]
     Active Substance: DEXAMETHASONE\TOBRAMYCIN
     Indication: UVEITIS
     Dosage: UNK
     Route: 065

REACTIONS (4)
  - Uveitis [Not Recovered/Not Resolved]
  - Glaucoma [Unknown]
  - Concomitant disease aggravated [Unknown]
  - Keratitis [Unknown]
